FAERS Safety Report 20037762 (Version 5)
Quarter: 2022Q3

REPORT INFORMATION
  Report Type: Report from Study
  Country: PA (occurrence: PA)
  Receive Date: 20211105
  Receipt Date: 20220815
  Transmission Date: 20221026
  Serious: Yes (Other)
  Sender: FDA-Public Use
  Company Number: PA-NOVARTISPH-NVSC2021PA250092

PATIENT
  Sex: Male

DRUGS (4)
  1. GILENYA [Suspect]
     Active Substance: FINGOLIMOD HYDROCHLORIDE
     Indication: Multiple sclerosis
     Dosage: 0.5 MG, QD
     Route: 048
     Dates: start: 20211013, end: 20211208
  2. GILENYA [Suspect]
     Active Substance: FINGOLIMOD HYDROCHLORIDE
     Indication: Relapsing-remitting multiple sclerosis
  3. GLISULIN [Concomitant]
     Indication: Type 2 diabetes mellitus
     Dosage: 1000 MG, QD
     Route: 048
  4. FINGOLIMOD HYDROCHLORIDE [Concomitant]
     Active Substance: FINGOLIMOD HYDROCHLORIDE
     Indication: Product used for unknown indication
     Dosage: UNK
     Route: 065

REACTIONS (7)
  - Ill-defined disorder [Not Recovered/Not Resolved]
  - Anger [Not Recovered/Not Resolved]
  - Aggression [Not Recovered/Not Resolved]
  - Alopecia [Not Recovered/Not Resolved]
  - Pain in extremity [Not Recovered/Not Resolved]
  - Arthralgia [Not Recovered/Not Resolved]
  - Stress [Unknown]
